FAERS Safety Report 14116050 (Version 2)
Quarter: 2017Q4

REPORT INFORMATION
  Report Type: Report from Study
  Country: US (occurrence: US)
  Receive Date: 20171023
  Receipt Date: 20171116
  Transmission Date: 20180321
  Serious: Yes (Hospitalization)
  Sender: FDA-Public Use
  Company Number: US-ACTELION-A-US2016-133850

PATIENT
  Age: 17 Year
  Sex: Female
  Weight: 61.22 kg

DRUGS (5)
  1. ADCIRCA [Concomitant]
     Active Substance: TADALAFIL
  2. REMODULIN [Concomitant]
     Active Substance: TREPROSTINIL
  3. TRACLEER [Suspect]
     Active Substance: BOSENTAN
     Indication: PULMONARY HYPERTENSION
     Dosage: 62.5 MG, BID
     Route: 048
  4. TRACLEER [Suspect]
     Active Substance: BOSENTAN
     Dosage: 125 MG, BID
     Route: 048
  5. TYVASO [Suspect]
     Active Substance: TREPROSTINIL
     Indication: PRODUCT USED FOR UNKNOWN INDICATION
     Route: 065

REACTIONS (10)
  - Cough [Unknown]
  - Device issue [Unknown]
  - Syncope [Unknown]
  - Productive cough [Unknown]
  - Nausea [Unknown]
  - Eructation [Unknown]
  - Catheter site erythema [Unknown]
  - Chest pain [Unknown]
  - Catheter site haemorrhage [Unknown]
  - Catheter site pain [Unknown]

NARRATIVE: CASE EVENT DATE: 20170405
